FAERS Safety Report 5527283-9 (Version None)
Quarter: 2007Q4

REPORT INFORMATION
  Report Type: 
  Country: None (occurrence: None)
  Receive Date: 20071128
  Receipt Date: 20071122
  Transmission Date: 20080405
  Serious: Yes (Death)
  Sender: FDA-Public Use
  Company Number: A0696103A

PATIENT
  Age: 56 Year
  Sex: Female
  Weight: 69 kg

DRUGS (5)
  1. SERETIDE [Suspect]
     Indication: ASTHMA
     Route: 055
     Dates: start: 20030101, end: 20071010
  2. BUDECORT [Concomitant]
     Dates: start: 20031101, end: 20071001
  3. ALDOMET [Concomitant]
     Dates: start: 19960101, end: 20071001
  4. HYDROCHLOROTHIAZIDE [Concomitant]
     Dates: start: 19960101, end: 20071001
  5. DISGREN [Concomitant]
     Dates: start: 20030101, end: 20071001

REACTIONS (1)
  - DEATH [None]
